FAERS Safety Report 13337729 (Version 2)
Quarter: 2017Q1

REPORT INFORMATION
  Report Type: Report from Study
  Country: MG (occurrence: MG)
  Receive Date: 20170315
  Receipt Date: 20170329
  Transmission Date: 20170428
  Serious: Yes (Death)
  Sender: FDA-Public Use
  Company Number: PHHY2017MG039074

PATIENT
  Age: 49 Year
  Sex: Female

DRUGS (1)
  1. GLIVEC [Suspect]
     Active Substance: IMATINIB MESYLATE
     Indication: CHRONIC MYELOID LEUKAEMIA
     Dosage: 300 MG, UNK
     Route: 065

REACTIONS (9)
  - General physical health deterioration [Unknown]
  - Cough [Unknown]
  - Decreased appetite [Unknown]
  - Haemorrhage [Fatal]
  - Pulmonary tuberculosis [Fatal]
  - Asthenia [Unknown]
  - Blast crisis in myelogenous leukaemia [Fatal]
  - Pyrexia [Unknown]
  - Tachycardia [Unknown]

NARRATIVE: CASE EVENT DATE: 201701
